FAERS Safety Report 18461159 (Version 1)
Quarter: 2020Q4

REPORT INFORMATION
  Report Type: Spontaneous
  Country: US (occurrence: US)
  Receive Date: 20201104
  Receipt Date: 20201104
  Transmission Date: 20210114
  Serious: No
  Sender: FDA-Public Use
  Company Number: US-CELGENEUS-USA-20200706501

PATIENT
  Sex: Male
  Weight: 33.6 kg

DRUGS (6)
  1. ETOPOSIDE. [Concomitant]
     Active Substance: ETOPOSIDE
     Indication: BRAIN NEOPLASM
     Route: 048
     Dates: start: 202006
  2. THALOMID [Suspect]
     Active Substance: THALIDOMIDE
     Indication: EPENDYMOMA MALIGNANT
     Dosage: 200 MILLIGRAM
     Route: 048
     Dates: start: 202006
  3. CYCLOPHOSPHAMIDE. [Concomitant]
     Active Substance: CYCLOPHOSPHAMIDE
     Indication: BRAIN NEOPLASM
     Route: 048
     Dates: start: 202006
  4. THALOMID [Suspect]
     Active Substance: THALIDOMIDE
     Indication: BRAIN NEOPLASM MALIGNANT
     Dosage: 400 MILLIGRAM
     Route: 048
     Dates: start: 202006
  5. THALOMID [Suspect]
     Active Substance: THALIDOMIDE
     Indication: OFF LABEL USE
     Dosage: 250 MILLIGRAM
     Route: 048
     Dates: start: 202007
  6. CELEBREX [Concomitant]
     Active Substance: CELECOXIB
     Indication: BRAIN NEOPLASM
     Route: 048
     Dates: start: 202006

REACTIONS (1)
  - Nausea [Recovering/Resolving]

NARRATIVE: CASE EVENT DATE: 2020
